FAERS Safety Report 16579663 (Version 1)
Quarter: 2019Q3

REPORT INFORMATION
  Report Type: Spontaneous
  Country: CA (occurrence: CA)
  Receive Date: 20190716
  Receipt Date: 20190716
  Transmission Date: 20191004
  Serious: Yes (Other)
  Sender: FDA-Public Use
  Company Number: CA-BAYER-2019-128746

PATIENT
  Age: 26 Year
  Sex: Female
  Weight: 82 kg

DRUGS (1)
  1. GADOVIST [Suspect]
     Active Substance: GADOBUTROL
     Dosage: 8.2 ML, ONCE
     Route: 042

REACTIONS (4)
  - Eye pruritus [Unknown]
  - Eye swelling [Unknown]
  - Pain [Unknown]
  - Ocular hyperaemia [Unknown]
